FAERS Safety Report 18030878 (Version 3)
Quarter: 2022Q4

REPORT INFORMATION
  Report Type: Report from Study
  Country: FR (occurrence: FR)
  Receive Date: 20200715
  Receipt Date: 20221214
  Transmission Date: 20230113
  Serious: Yes (Death, Other)
  Sender: FDA-Public Use
  Company Number: FR-BAXTER-2020BAX014438

PATIENT
  Age: 83 Year
  Sex: Male

DRUGS (4)
  1. DOXORUBICIN HYDROCHLORIDE [Suspect]
     Active Substance: DOXORUBICIN HYDROCHLORIDE
     Indication: Plasma cell myeloma
     Dosage: 16 MG/DOSE 3 DOSE(S)/WEEK 1 WEEK(S)/CYCLE, TREATMENT LINE 6, DURATION 1.1 MONTHS
     Route: 065
     Dates: end: 20180417
  2. VINCRISTINE [Suspect]
     Active Substance: VINCRISTINE
     Indication: Plasma cell myeloma
     Dosage: 0.4 MG/DOSE 3 DOSE(S)/WEEK 1 WEEK(S)/CYCLE, 1 WEEK/CYCLE, TREATMENT LINE 6, DURATION 1.1 MONTHS
     Route: 065
     Dates: end: 20180417
  3. DEXAMETHASONE [Suspect]
     Active Substance: DEXAMETHASONE
     Indication: Plasma cell myeloma
     Dosage: 20 MG/DOSE 4 DOSE(S)/WEEK 1 WEEK(S)/CYCLE, TREATMENT LINE 6, DURATION 1.1 MONTHS
     Route: 065
     Dates: end: 20180417
  4. DARATUMUMAB [Suspect]
     Active Substance: DARATUMUMAB
     Indication: Product used for unknown indication
     Dosage: 1000 MG/DOSE 1 DOSE(S)/WEEK 1 WEEK(S)/CYCLE, TREATMENT LINE 4, DURATION 1.2 MONTHS
     Route: 065
     Dates: end: 20171212

REACTIONS (5)
  - Plasma cell myeloma [Fatal]
  - Gait disturbance [Unknown]
  - Dysuria [Unknown]
  - Myalgia [Unknown]
  - Pain [Unknown]
